FAERS Safety Report 7720069-6 (Version None)
Quarter: 2011Q3

REPORT INFORMATION
  Report Type: 
  Country: None (occurrence: None)
  Receive Date: 20110831
  Receipt Date: 20110824
  Transmission Date: 20111222
  Serious: Yes (Life-Threatening)
  Sender: FDA-Public Use
  Company Number: JP-SHIRE-ALL1-2011-01631

PATIENT
  Age: 87 Year
  Sex: Female

DRUGS (5)
  1. LAXATIVES [Concomitant]
     Indication: CONSTIPATION
     Dosage: UNK, UNKNOWN
     Route: 065
  2. CALCIUM CARBONATE [Suspect]
     Indication: PRODUCT USED FOR UNKNOWN INDICATION
     Dosage: UNK, UNKNOWN(A TOTAL OF 9 UNKNOWN MG TABLETS DAILY)
     Route: 048
     Dates: start: 20070626, end: 20080814
  3. PURSENNID                          /00142207/ [Concomitant]
     Indication: CONSTIPATION
     Dosage: 2 DF, UNKNOWN
     Route: 048
     Dates: start: 20080101
  4. FOSRENOL [Suspect]
     Indication: HYPERPHOSPHATAEMIA
     Dosage: 1500 MG, OTHER(A TOTAL DAILY DOSE OF 1500MG )
     Route: 048
     Dates: start: 20101112, end: 20110513
  5. RENAGEL [Suspect]
     Indication: PRODUCT USED FOR UNKNOWN INDICATION
     Dosage: UNK UNK, UNKNOWN(A TOTAL OF 21 UNKNOWN MF TABLETS DAILY)
     Route: 048
     Dates: start: 20080814, end: 20110513

REACTIONS (2)
  - WRONG TECHNIQUE IN DRUG USAGE PROCESS [None]
  - RECTAL PERFORATION [None]
